FAERS Safety Report 6647273-2 (Version None)
Quarter: 2010Q1

REPORT INFORMATION
  Report Type: 
  Country: None (occurrence: None)
  Receive Date: 20100323
  Receipt Date: 20100312
  Transmission Date: 20100710
  Serious: Yes (Hospitalization)
  Sender: FDA-Public Use
  Company Number: A0851011A

PATIENT
  Sex: Male

DRUGS (1)
  1. ADVAIR DISKUS 100/50 [Suspect]
     Indication: EMPHYSEMA
     Route: 065
     Dates: start: 20090715

REACTIONS (4)
  - APHASIA [None]
  - BIOPSY VOCAL CORD [None]
  - DYSPHONIA [None]
  - VOCAL CORD DISORDER [None]
